FAERS Safety Report 7945539-7 (Version None)
Quarter: 2011Q4

REPORT INFORMATION
  Report Type: 
  Country: None (occurrence: None)
  Receive Date: 20111125
  Receipt Date: 20111114
  Transmission Date: 20120403
  Serious: Yes (Death)
  Sender: FDA-Public Use
  Company Number: 2011P1010622

PATIENT

DRUGS (1)
  1. FENTANYL [Suspect]
     Indication: COMPLETED SUICIDE
     Dosage: PO
     Route: 048

REACTIONS (3)
  - SUICIDE ATTEMPT [None]
  - INCORRECT ROUTE OF DRUG ADMINISTRATION [None]
  - INTENTIONAL OVERDOSE [None]
